FAERS Safety Report 12449168 (Version 2)
Quarter: 2016Q2

REPORT INFORMATION
  Report Type: Spontaneous
  Country: US (occurrence: US)
  Receive Date: 20160608
  Receipt Date: 20160613
  Transmission Date: 20160815
  Serious: No
  Sender: FDA-Public Use
  Company Number: US-PFIZER INC-2016290000

PATIENT
  Age: 61 Year
  Sex: Female
  Weight: 91 kg

DRUGS (2)
  1. EFFEXOR XR [Suspect]
     Active Substance: VENLAFAXINE HYDROCHLORIDE
     Dosage: 150 MG IN THE MORNING AND 75MG IN THE AFTERNOON
  2. ALPRAZOLAM. [Concomitant]
     Active Substance: ALPRAZOLAM
     Indication: PANIC ATTACK
     Dosage: 2 IN THE MORNING AND 2 AT NIGHT

REACTIONS (2)
  - Weight increased [Unknown]
  - Body mass index increased [Unknown]
